FAERS Safety Report 23609780 (Version 1)
Quarter: 2024Q1

REPORT INFORMATION
  Report Type: Report from Study
  Country: IT (occurrence: IT)
  Receive Date: 20240308
  Receipt Date: 20240308
  Transmission Date: 20240409
  Serious: Yes (Hospitalization, Other)
  Sender: FDA-Public Use
  Company Number: IT-Accord-410864

PATIENT

DRUGS (4)
  1. DEXMEDETOMIDINE HYDROCHLORIDE [Suspect]
     Active Substance: DEXMEDETOMIDINE HYDROCHLORIDE
     Indication: Sedation
     Dosage: 1.0 +/-0.3 MG
  2. REMIFENTANIL HYDROCHLORIDE [Suspect]
     Active Substance: REMIFENTANIL HYDROCHLORIDE
     Indication: Sedation
     Dosage: 4.2 +/- 1.3 MG
  3. CLONIDINE [Concomitant]
     Active Substance: CLONIDINE
     Indication: Anaesthetic premedication
     Dosage: 2 MICROG/KG
     Route: 030
  4. PHENYTOIN [Concomitant]
     Active Substance: PHENYTOIN
     Indication: Seizure prophylaxis
     Dosage: 15 MG/KG BEFORE SURGERY
     Route: 042

REACTIONS (1)
  - Epilepsy [Unknown]
